FAERS Safety Report 25412433 (Version 3)
Quarter: 2025Q3

REPORT INFORMATION
  Report Type: Spontaneous
  Country: US (occurrence: US)
  Receive Date: 20250609
  Receipt Date: 20250801
  Transmission Date: 20251021
  Serious: Yes (Hospitalization, Other)
  Sender: PFIZER
  Company Number: US-PFIZER INC-202500115220

PATIENT
  Age: 70 Year
  Sex: Male
  Weight: 100.1 kg

DRUGS (5)
  1. RETACRIT [Suspect]
     Active Substance: EPOETIN ALFA-EPBX
     Indication: End stage renal disease
     Route: 058
     Dates: start: 2022
  2. RETACRIT [Suspect]
     Active Substance: EPOETIN ALFA-EPBX
     Indication: Chronic kidney disease
     Route: 058
     Dates: start: 2024
  3. RETACRIT [Suspect]
     Active Substance: EPOETIN ALFA-EPBX
     Route: 058
     Dates: start: 202501
  4. RETACRIT [Suspect]
     Active Substance: EPOETIN ALFA-EPBX
     Route: 058
     Dates: start: 20250317
  5. RETACRIT [Suspect]
     Active Substance: EPOETIN ALFA-EPBX
     Route: 058
     Dates: start: 20250528

REACTIONS (9)
  - Drug ineffective [Unknown]
  - Pancytopenia [Not Recovered/Not Resolved]
  - Pneumonia [Unknown]
  - Aplasia pure red cell [Unknown]
  - Syncope [Unknown]
  - Haemorrhage [Unknown]
  - Reticulocyte count decreased [Unknown]
  - Drug level decreased [Unknown]
  - Blood erythropoietin decreased [Unknown]

NARRATIVE: CASE EVENT DATE: 20250521
